FAERS Safety Report 24582619 (Version 1)
Quarter: 2024Q4

REPORT INFORMATION
  Report Type: Spontaneous
  Country: US (occurrence: US)
  Receive Date: 20241106
  Receipt Date: 20241106
  Transmission Date: 20250114
  Serious: Yes (Hospitalization)
  Sender: Kenvue
  Company Number: US-KENVUE-20241033203

PATIENT
  Sex: Female

DRUGS (1)
  1. TYLENOL 8HR [Suspect]
     Active Substance: ACETAMINOPHEN
     Indication: Tooth infection
     Dosage: 2 DOSAGE FORM, TWICE A DAY
     Route: 065

REACTIONS (3)
  - Inappropriate schedule of product administration [Unknown]
  - Feeling abnormal [Unknown]
  - Hepatic enzyme increased [Not Recovered/Not Resolved]
